FAERS Safety Report 13694303 (Version 4)
Quarter: 2017Q3

REPORT INFORMATION
  Report Type: Spontaneous
  Country: JP (occurrence: JP)
  Receive Date: 20170627
  Receipt Date: 20170921
  Transmission Date: 20171127
  Serious: Yes (Hospitalization, Other)
  Sender: FDA-Public Use
  Company Number: JP-ASTRAZENECA-2017SE65821

PATIENT
  Age: 33059 Day
  Sex: Female
  Weight: 35 kg

DRUGS (6)
  1. DONEPEZIL HYDROCHLORIDE. [Suspect]
     Active Substance: DONEPEZIL HYDROCHLORIDE
     Indication: DEMENTIA
     Route: 048
  2. ROZEREM [Suspect]
     Active Substance: RAMELTEON
     Indication: SLEEP DISORDER
     Route: 048
  3. NEXIUM [Suspect]
     Active Substance: ESOMEPRAZOLE MAGNESIUM
     Indication: GASTROOESOPHAGEAL REFLUX DISEASE
     Route: 048
  4. LIXIANA [Suspect]
     Active Substance: EDOXABAN TOSYLATE
     Indication: CEREBRAL INFARCTION
     Route: 048
     Dates: start: 20170516
  5. ATENOLOL. [Suspect]
     Active Substance: ATENOLOL
     Indication: ANGINA PECTORIS
     Route: 048
  6. BELSOMRA [Suspect]
     Active Substance: SUVOREXANT
     Indication: SLEEP DISORDER
     Route: 048

REACTIONS (4)
  - Large intestine polyp [Unknown]
  - Anaemia [Recovering/Resolving]
  - Small intestinal haemorrhage [Unknown]
  - Colon cancer [Recovering/Resolving]

NARRATIVE: CASE EVENT DATE: 20170531
